FAERS Safety Report 9711022 (Version 1)
Quarter: 2013Q4

REPORT INFORMATION
  Report Type: Spontaneous
  Country: US (occurrence: US)
  Receive Date: 20131126
  Receipt Date: 20131126
  Transmission Date: 20140711
  Serious: No
  Sender: FDA-Public Use
  Company Number: US-BRISTOL-MYERS SQUIBB COMPANY-19033869

PATIENT
  Age: 53 Year
  Sex: Female
  Weight: 96.6 kg

DRUGS (2)
  1. BYDUREON [Suspect]
     Indication: TYPE 2 DIABETES MELLITUS
     Dosage: 2ND INJECTION 10JUN2013 ?3RD INJECITON 17JUN2013
     Route: 058
     Dates: start: 20130601
  2. METFORMIN [Concomitant]

REACTIONS (3)
  - Nodule [Unknown]
  - Pruritus [Unknown]
  - Decreased appetite [Unknown]
